FAERS Safety Report 7989682-5 (Version None)
Quarter: 2011Q4

REPORT INFORMATION
  Report Type: 
  Country: None (occurrence: None)
  Receive Date: 20111219
  Receipt Date: 20111207
  Transmission Date: 20120403
  Serious: Yes (Other)
  Sender: FDA-Public Use
  Company Number: JP-SANOFI-AVENTIS-2011SA082614

PATIENT
  Sex: Female

DRUGS (2)
  1. HERBAL PREPARATION [Concomitant]
  2. ZOLPIDEM [Suspect]
     Route: 048

REACTIONS (2)
  - SLEEP APNOEA SYNDROME [None]
  - SOMNOLENCE [None]
